FAERS Safety Report 4695022-X (Version None)
Quarter: 2005Q2

REPORT INFORMATION
  Report Type: 
  Country: None (occurrence: None)
  Receive Date: 20050617
  Receipt Date: 20050530
  Transmission Date: 20051028
  Serious: Yes (Hospitalization, Other)
  Sender: FDA-Public Use
  Company Number: 2005BH000076

PATIENT
  Age: 35 Year
  Sex: Female

DRUGS (1)
  1. GENTAMICIN [Suspect]

REACTIONS (2)
  - DIPLOPIA [None]
  - PSEUDO-BARTTER SYNDROME [None]
